FAERS Safety Report 21746057 (Version 2)
Quarter: 2022Q4

REPORT INFORMATION
  Report Type: Report from Study
  Country: US (occurrence: US)
  Receive Date: 20221219
  Receipt Date: 20221220
  Transmission Date: 20230113
  Serious: No
  Sender: FDA-Public Use
  Company Number: US-ABBVIE-4235385

PATIENT
  Sex: Female
  Weight: 72 kg

DRUGS (6)
  1. HUMIRA [Suspect]
     Active Substance: ADALIMUMAB
     Indication: Rheumatoid arthritis
     Dosage: THE EVENT ONSET DATE FOR FIBROMYALGIA WAS AUG 2022 AND FOR RHEUMATOID ARTHRITIS, STRESS AND HUMIR...
     Route: 058
     Dates: start: 20220712
  2. METHOTREXATE [Concomitant]
     Active Substance: METHOTREXATE
     Indication: Rheumatoid arthritis
  3. IBUPROFEN [Concomitant]
     Active Substance: IBUPROFEN
     Indication: Pain
  4. TYLENOL [Concomitant]
     Active Substance: ACETAMINOPHEN
     Indication: Pain
  5. SULFASALAZINE [Concomitant]
     Active Substance: SULFASALAZINE
     Indication: Inflammation
  6. FOLIC ACID [Concomitant]
     Active Substance: FOLIC ACID
     Indication: Adverse drug reaction

REACTIONS (4)
  - Rheumatoid arthritis [Unknown]
  - Fibromyalgia [Recovering/Resolving]
  - Stress [Recovering/Resolving]
  - Therapeutic product effect incomplete [Unknown]
